FAERS Safety Report 6010398-9 (Version None)
Quarter: 2008Q4

REPORT INFORMATION
  Report Type: 
  Country: None (occurrence: None)
  Receive Date: 20081218
  Receipt Date: 20071212
  Transmission Date: 20090506
  Serious: No
  Sender: FDA-Public Use
  Company Number: US-AMGEN-KDL256774

PATIENT
  Sex: Male

DRUGS (1)
  1. ENBREL [Suspect]
     Indication: PSORIASIS
     Route: 058
     Dates: start: 20060101

REACTIONS (5)
  - INJECTION SITE INFECTION [None]
  - INJECTION SITE IRRITATION [None]
  - PSORIASIS [None]
  - STAPHYLOCOCCAL INFECTION [None]
  - STRESS [None]
